FAERS Safety Report 10025201 (Version 1)
Quarter: 2014Q1

REPORT INFORMATION
  Report Type: Spontaneous
  Country: BE (occurrence: BE)
  Receive Date: 20140320
  Receipt Date: 20140320
  Transmission Date: 20141002
  Serious: Yes (Life-Threatening, Hospitalization)
  Sender: FDA-Public Use
  Company Number: BE-BRISTOL-MYERS SQUIBB COMPANY-20516175

PATIENT
  Age: 83 Year
  Sex: Male

DRUGS (9)
  1. GLUCOPHAGE [Suspect]
     Indication: DIABETES MELLITUS
     Route: 048
  2. LANOXIN [Suspect]
     Route: 048
  3. UNI DIAMICRON [Suspect]
     Indication: DIABETES MELLITUS
     Route: 048
  4. BURINEX [Suspect]
     Route: 048
  5. SPIRONOLACTONE [Suspect]
     Indication: DIABETES MELLITUS
     Route: 048
  6. EMCONCOR [Concomitant]
     Route: 048
  7. ASAFLOW [Concomitant]
     Route: 048
  8. PROLOPA [Concomitant]
     Route: 048
  9. RIVOTRIL [Concomitant]
     Route: 048

REACTIONS (8)
  - General physical health deterioration [Recovering/Resolving]
  - Muscular weakness [Recovering/Resolving]
  - Hyperkalaemia [Recovering/Resolving]
  - Fluid retention [Recovering/Resolving]
  - Bradycardia [Recovering/Resolving]
  - Renal failure acute [Recovering/Resolving]
  - Toxicity to various agents [Recovering/Resolving]
  - Lactic acidosis [Recovering/Resolving]
